FAERS Safety Report 7353200-5 (Version None)
Quarter: 2011Q1

REPORT INFORMATION
  Report Type: 
  Country: None (occurrence: None)
  Receive Date: 20110310
  Receipt Date: 20110310
  Transmission Date: 20110831
  Serious: Yes (Disabling)
  Sender: FDA-Public Use
  Company Number: None

PATIENT
  Sex: Female
  Weight: 68.2 kg

DRUGS (2)
  1. RECLAST [Suspect]
     Dosage: INFUSION ONCE A YEAR
     Dates: start: 20080625, end: 20090625
  2. RECLAST [Suspect]
     Dosage: INFUSION ONCE A YEAR
     Dates: start: 20090629, end: 20100629

REACTIONS (7)
  - NECK PAIN [None]
  - ARTHRALGIA [None]
  - BACK PAIN [None]
  - HEADACHE [None]
  - MUSCULOSKELETAL PAIN [None]
  - DECREASED ACTIVITY [None]
  - DYSSTASIA [None]
